FAERS Safety Report 5055892-2 (Version None)
Quarter: 2006Q3

REPORT INFORMATION
  Report Type: 
  Country: None (occurrence: None)
  Receive Date: 20060720
  Receipt Date: 20060601
  Transmission Date: 20061208
  Serious: Yes (Death)
  Sender: FDA-Public Use
  Company Number: US-RB-3396-2006

PATIENT
  Sex: Female
  Weight: 68.1 kg

DRUGS (1)
  1. SUBOXONE [Suspect]
     Route: 060

REACTIONS (1)
  - DEATH [None]
